FAERS Safety Report 7439581-2 (Version None)
Quarter: 2011Q2

REPORT INFORMATION
  Report Type: 
  Country: None (occurrence: None)
  Receive Date: 20110427
  Receipt Date: 20110120
  Transmission Date: 20111010
  Serious: Yes (Hospitalization, Other)
  Sender: FDA-Public Use
  Company Number: US-BAYER-201038028NA

PATIENT
  Age: 37 Year
  Sex: Female

DRUGS (6)
  1. RANITIDINE [Concomitant]
     Dosage: 150 MG, QD
  2. YAZ [Suspect]
     Route: 048
  3. YASMIN [Suspect]
     Dosage: UNK
     Route: 048
     Dates: start: 20070101
  4. AMOXICILLIN [Concomitant]
     Indication: SINUSITIS
     Dosage: 875 MG, BID
  5. MOTRIN [Concomitant]
     Dosage: 600 MG, QD
  6. ALLEGRA [Concomitant]

REACTIONS (7)
  - INJURY [None]
  - PARAESTHESIA [None]
  - SUPERIOR SAGITTAL SINUS THROMBOSIS [None]
  - CEREBROVASCULAR ACCIDENT [None]
  - ATRIOVENTRICULAR BLOCK COMPLETE [None]
  - MONOPARESIS [None]
  - BRADYCARDIA [None]
